FAERS Safety Report 11804386 (Version 1)
Quarter: 2015Q4

REPORT INFORMATION
  Report Type: Spontaneous
  Country: US (occurrence: US)
  Receive Date: 20151204
  Receipt Date: 20151204
  Transmission Date: 20160305
  Serious: No
  Sender: FDA-Public Use
  Company Number: US-SHIRE-US-002725

PATIENT
  Age: 65 Year
  Sex: Female
  Weight: 86.17 kg

DRUGS (1)
  1. NATPARA (PARATHYROID HORMONE) [Suspect]
     Active Substance: PARATHYROID HORMONE
     Indication: HYPOPARATHYROIDISM
     Dosage: 50 ?G, UNKNOWN
     Route: 058
     Dates: start: 20151001

REACTIONS (3)
  - Injection site laceration [Unknown]
  - Injection site extravasation [Unknown]
  - Drug dose omission [Recovered/Resolved]

NARRATIVE: CASE EVENT DATE: 20151103
